FAERS Safety Report 26075346 (Version 1)
Quarter: 2025Q4

REPORT INFORMATION
  Report Type: Other
  Country: US (occurrence: US)
  Receive Date: 20251121
  Receipt Date: 20251121
  Transmission Date: 20260118
  Serious: Yes (Hospitalization)
  Sender: VERASTEM
  Company Number: US-VERASTEM-251024US-AFCPK-00745

PATIENT

DRUGS (1)
  1. AVMAPKI FAKZYNJA CO-PACK [Suspect]
     Active Substance: AVUTOMETINIB POTASSIUM\DEFACTINIB HYDROCHLORIDE
     Indication: Ovarian cancer
     Dosage: AVMAPKI 2.4 MG ON DAYS 1 AND 4 OF WEEKS 1-3, FAKYNZA 200 MG DAILY ON WEEKS 1-3 OUT OF 4 WEEKS
     Route: 048
     Dates: start: 20250915

REACTIONS (2)
  - Lung disorder [Unknown]
  - Rash [Unknown]
